FAERS Safety Report 12705624 (Version 2)
Quarter: 2016Q3

REPORT INFORMATION
  Report Type: Report from Study
  Country: DE (occurrence: DE)
  Receive Date: 20160901
  Receipt Date: 20160909
  Transmission Date: 20161109
  Serious: Yes (Hospitalization, Other)
  Sender: FDA-Public Use
  Company Number: DE-ABBVIE-16K-062-1714089-00

PATIENT
  Age: 37 Year
  Sex: Female
  Weight: 53 kg

DRUGS (6)
  1. ARCOXIA [Concomitant]
     Active Substance: ETORICOXIB
     Indication: PRODUCT USED FOR UNKNOWN INDICATION
     Dates: start: 20140520, end: 20160812
  2. DEKRISTOL [Concomitant]
     Active Substance: CHOLECALCIFEROL
     Indication: PRODUCT USED FOR UNKNOWN INDICATION
  3. HUMIRA [Suspect]
     Active Substance: ADALIMUMAB
     Indication: ANKYLOSING SPONDYLITIS
     Route: 058
     Dates: start: 20140916, end: 20160830
  4. MAXIM [Concomitant]
     Active Substance: DIENOGEST\ETHINYL ESTRADIOL
     Indication: PRODUCT USED FOR UNKNOWN INDICATION
     Dates: end: 201608
  5. CITALOPRAM [Concomitant]
     Active Substance: CITALOPRAM HYDROBROMIDE
     Indication: PRODUCT USED FOR UNKNOWN INDICATION
  6. ATORVASTATINE [Concomitant]
     Active Substance: ATORVASTATIN
     Indication: PRODUCT USED FOR UNKNOWN INDICATION

REACTIONS (6)
  - Aphasia [Recovering/Resolving]
  - Hypoaesthesia [Recovering/Resolving]
  - Cerebral infarction [Recovered/Resolved]
  - Paresis [Recovered/Resolved]
  - Cerebrovascular accident [Recovering/Resolving]
  - Paraesthesia [Recovered/Resolved]

NARRATIVE: CASE EVENT DATE: 20160812
